FAERS Safety Report 6428483-6 (Version None)
Quarter: 2009Q4

REPORT INFORMATION
  Report Type: 
  Country: None (occurrence: None)
  Receive Date: 20091102
  Receipt Date: 20091022
  Transmission Date: 20100525
  Serious: Yes (Life-Threatening)
  Sender: FDA-Public Use
  Company Number: GXKR2009GB11604

PATIENT
  Age: 53 Year
  Sex: Male

DRUGS (8)
  1. WARFARIN SODIUM [Suspect]
  2. INFLUENZA VIRUS VACCINE           (INFLUENZA VIRUS VACCINE POLYVALENT) [Suspect]
     Dates: start: 20071005
  3. LIPITOR [Suspect]
     Dosage: 20 MG, QD, ORAL
     Route: 048
     Dates: start: 20071003
  4. CEFIXIME CHEWABLE [Concomitant]
  5. CIPROFLOXACIN [Concomitant]
  6. COZAAR [Concomitant]
  7. OMEPRAZOLE [Concomitant]
  8. TAMSULOSIN HCL [Concomitant]

REACTIONS (5)
  - BACK PAIN [None]
  - DRUG INTERACTION [None]
  - PROTHROMBIN TIME SHORTENED [None]
  - RENAL HAEMORRHAGE [None]
  - RENAL PAIN [None]
